FAERS Safety Report 6132773-4 (Version None)
Quarter: 2009Q1

REPORT INFORMATION
  Report Type: 
  Country: None (occurrence: None)
  Receive Date: 20090325
  Receipt Date: 20090325
  Transmission Date: 20090719
  Serious: Yes (Hospitalization)
  Sender: FDA-Public Use
  Company Number: None

PATIENT
  Age: 63 Year
  Sex: Male

DRUGS (1)
  1. AZATHIOPRINE [Suspect]
     Indication: SARCOIDOSIS
     Dosage: 150 MG EVERY DAY PO
     Route: 048
     Dates: start: 20081105, end: 20090228

REACTIONS (1)
  - LEUKOPENIA [None]
